FAERS Safety Report 9537098 (Version 1)
Quarter: 2013Q3

REPORT INFORMATION
  Report Type: Report from Study
  Country: US (occurrence: US)
  Receive Date: 20130919
  Receipt Date: 20130919
  Transmission Date: 20140515
  Serious: Yes (Hospitalization, Other)
  Sender: FDA-Public Use
  Company Number: PHEH2013US019551

PATIENT
  Age: 20 Year
  Sex: Male
  Weight: 53.61 kg

DRUGS (4)
  1. TOBI [Suspect]
     Indication: CYSTIC FIBROSIS
     Dosage: UNK
  2. VITAMIN D [Concomitant]
     Dosage: 1 DF, QD (5,000 UNITS)
  3. AQUADEKS [Concomitant]
     Dosage: 1 DF, QD
  4. CREON [Concomitant]
     Dosage: 24 CAPS

REACTIONS (2)
  - Infective pulmonary exacerbation of cystic fibrosis [Recovering/Resolving]
  - Pulmonary function test decreased [Recovering/Resolving]
